FAERS Safety Report 26178411 (Version 1)
Quarter: 2025Q4

REPORT INFORMATION
  Report Type: Spontaneous
  Country: EU (occurrence: EU)
  Receive Date: 20251219
  Receipt Date: 20251219
  Transmission Date: 20260118
  Serious: Yes (Other)
  Sender: TEVA
  Company Number: None

PATIENT
  Age: 73 Year
  Sex: Male
  Weight: 83 kg

DRUGS (1)
  1. PRAVASTATIN [Suspect]
     Active Substance: PRAVASTATIN
     Indication: Hypercholesterolaemia
     Dosage: 1 TIME DAILY 1 BEFORE GOING TO SLEEP, BRAND NAME NOT SPECIFIED
     Route: 048
     Dates: start: 20230512, end: 20251113

REACTIONS (2)
  - Diabetes mellitus inadequate control [Recovered/Resolved]
  - Muscle discomfort [Recovered/Resolved]
